FAERS Safety Report 15961554 (Version 2)
Quarter: 2019Q1

REPORT INFORMATION
  Report Type: Spontaneous
  Country: US (occurrence: US)
  Receive Date: 20190214
  Receipt Date: 20190226
  Transmission Date: 20190417
  Serious: Yes (Other)
  Sender: FDA-Public Use
  Company Number: US-HORIZON-VIM-0081-2019

PATIENT
  Sex: Female

DRUGS (15)
  1. NEXIUM [Suspect]
     Active Substance: ESOMEPRAZOLE MAGNESIUM
     Route: 048
     Dates: start: 20111005
  2. FOLIC ACID. [Concomitant]
     Active Substance: FOLIC ACID
  3. FISH OIL [Concomitant]
     Active Substance: FISH OIL
  4. NIACIN. [Concomitant]
     Active Substance: NIACIN
  5. TRAMADOL. [Concomitant]
     Active Substance: TRAMADOL
  6. CYANOCOBALAMIN. [Concomitant]
     Active Substance: CYANOCOBALAMIN
  7. VIMOVO [Suspect]
     Active Substance: ESOMEPRAZOLE MAGNESIUM\NAPROXEN
     Indication: PRODUCT USED FOR UNKNOWN INDICATION
     Route: 048
     Dates: start: 2011, end: 2018
  8. NEXIUM [Suspect]
     Active Substance: ESOMEPRAZOLE MAGNESIUM
     Indication: PRODUCT USED FOR UNKNOWN INDICATION
     Route: 048
     Dates: start: 2011, end: 2018
  9. ZINC. [Concomitant]
     Active Substance: ZINC
  10. ACIPHEX [Suspect]
     Active Substance: RABEPRAZOLE SODIUM
     Indication: PRODUCT USED FOR UNKNOWN INDICATION
     Route: 065
     Dates: start: 2011, end: 2018
  11. VITAMIN B12 [Concomitant]
     Active Substance: CYANOCOBALAMIN
  12. LISINOPRIL. [Concomitant]
     Active Substance: LISINOPRIL
  13. ASPIRIN. [Concomitant]
     Active Substance: ASPIRIN
  14. VITAMIN D [Concomitant]
     Active Substance: CHOLECALCIFEROL
  15. TRICOR [Concomitant]
     Active Substance: FENOFIBRATE

REACTIONS (1)
  - Chronic kidney disease [Unknown]
